FAERS Safety Report 4847691-9 (Version None)
Quarter: 2005Q4

REPORT INFORMATION
  Report Type: 
  Country: None (occurrence: None)
  Receive Date: 20051207
  Receipt Date: 20051129
  Transmission Date: 20060501
  Serious: Yes (Hospitalization, Other)
  Sender: FDA-Public Use
  Company Number: US-MERCK-0512USA00189

PATIENT
  Age: 43 Year
  Sex: Male

DRUGS (1)
  1. VIOXX [Suspect]
     Route: 048

REACTIONS (26)
  - ANAEMIA [None]
  - ANAEMIA POSTOPERATIVE [None]
  - BLOOD GLUCOSE INCREASED [None]
  - BUNDLE BRANCH BLOCK LEFT [None]
  - CHEST PAIN [None]
  - CONSTIPATION [None]
  - CORONARY ARTERY DISEASE [None]
  - DEHYDRATION [None]
  - FOOD POISONING [None]
  - GASTROOESOPHAGEAL REFLUX DISEASE [None]
  - HYPERLIPIDAEMIA [None]
  - HYPOXIA [None]
  - IMPINGEMENT SYNDROME [None]
  - LUNG INFILTRATION [None]
  - MONARTHRITIS [None]
  - MYOCARDIAL INFARCTION [None]
  - NAUSEA [None]
  - NEPHROLITHIASIS [None]
  - OSTEOARTHRITIS [None]
  - PNEUMONIA [None]
  - REFLUX OESOPHAGITIS [None]
  - RENAL FAILURE [None]
  - ROTATOR CUFF SYNDROME [None]
  - TACHYCARDIA [None]
  - TENDONITIS [None]
  - VOMITING [None]
